FAERS Safety Report 17544821 (Version 1)
Quarter: 2020Q1

REPORT INFORMATION
  Report Type: Spontaneous
  Country: IE (occurrence: IE)
  Receive Date: 20200316
  Receipt Date: 20200316
  Transmission Date: 20200409
  Serious: Yes (Other)
  Sender: FDA-Public Use
  Company Number: IE-009507513-2003IRL003442

PATIENT
  Age: 64 Year
  Sex: Female

DRUGS (2)
  1. SINEMET PLUS 25MG/100MG TABLETS [Suspect]
     Active Substance: CARBIDOPA\LEVODOPA
     Dosage: 25M/100MG, UNK
     Route: 048
  2. SINEMET PLUS 25MG/100MG TABLETS [Suspect]
     Active Substance: CARBIDOPA\LEVODOPA
     Indication: PARKINSON^S DISEASE
     Dosage: 25M/100MG, UNK
     Route: 048
     Dates: start: 2016

REACTIONS (4)
  - Product availability issue [Unknown]
  - Drug ineffective [Unknown]
  - Parkinson^s disease [Unknown]
  - Product quality issue [Unknown]
